FAERS Safety Report 12924045 (Version 2)
Quarter: 2016Q4

REPORT INFORMATION
  Report Type: Spontaneous
  Country: US (occurrence: US)
  Receive Date: 20161109
  Receipt Date: 20161110
  Transmission Date: 20170207
  Serious: No
  Sender: FDA-Public Use
  Company Number: ALCN2016US007510

PATIENT
  Sex: Female

DRUGS (1)
  1. GENTEAL MODERATE TO SEVERE GEL DROPS [Suspect]
     Active Substance: CARBOXYMETHYLCELLULOSE SODIUM\HYPROMELLOSES
     Indication: PRODUCT USED FOR UNKNOWN INDICATION
     Route: 047

REACTIONS (2)
  - Eye irritation [Recovered/Resolved]
  - Expired product administered [Unknown]
